FAERS Safety Report 17208810 (Version 1)
Quarter: 2019Q4

REPORT INFORMATION
  Report Type: Report from Study
  Country: DE (occurrence: DE)
  Receive Date: 20191227
  Receipt Date: 20191227
  Transmission Date: 20200122
  Serious: Yes (Death)
  Sender: FDA-Public Use
  Company Number: DE-ROCHE-2179480

PATIENT
  Age: 36 Year
  Sex: Female
  Weight: 58 kg

DRUGS (11)
  1. PERTUZUMAB. [Suspect]
     Active Substance: PERTUZUMAB
     Indication: BREAST CANCER
     Dosage: DATE OF LAST DOSE PRIOR TO ONSET OF FIRST EPISODE OF EVENT ON 05/FEB/2018.
     Route: 065
     Dates: start: 20180205
  2. TAVEGIL [CLEMASTINE] [Concomitant]
     Active Substance: CLEMASTINE
     Route: 042
     Dates: start: 20180320, end: 20180320
  3. DOCETAXEL. [Suspect]
     Active Substance: DOCETAXEL
     Indication: BREAST CANCER
     Dosage: DATE OF LAST DOSE PRIOR TO ONSET OF EVENT ON 05/FEB/2018.
     Route: 065
     Dates: start: 20180205
  4. TRASTUZUMAB. [Suspect]
     Active Substance: TRASTUZUMAB
     Dosage: DATE OF LAST DOSE PRIOR TO ONSET OF SECOND EPISODE OF EVENT ON 27/FEB/2018.
     Route: 042
     Dates: start: 20180227
  5. DEXAMETHASONE SODIUM PHOSPHATE. [Concomitant]
     Active Substance: DEXAMETHASONE SODIUM PHOSPHATE
     Route: 042
     Dates: start: 20180227, end: 20180227
  6. DOCETAXEL. [Suspect]
     Active Substance: DOCETAXEL
     Dosage: DATE OF LAST DOSE PRIOR TO ONSET OF SECOND EPISODE OF EVENT ON 27/FEB/2018.
     Route: 065
     Dates: start: 20180227, end: 20180423
  7. TAVEGIL [CLEMASTINE] [Concomitant]
     Active Substance: CLEMASTINE
     Route: 042
     Dates: start: 20180227, end: 20180227
  8. PERTUZUMAB. [Suspect]
     Active Substance: PERTUZUMAB
     Dosage: DATE OF LAST DOSE PRIOR TO ONSET OF EVENT ON 27/FEB/2018.
     Route: 065
     Dates: start: 20180227
  9. TRASTUZUMAB. [Suspect]
     Active Substance: TRASTUZUMAB
     Indication: BREAST CANCER
     Dosage: DATE OF LAST DOSE PRIOR TO ONSET FIRST EPISODE OF EVENT ON 05/FEB/2018.
     Route: 042
     Dates: start: 20180205
  10. GELAFUNDIN [GELATIN] [Concomitant]
     Active Substance: GELATIN
     Route: 042
     Dates: start: 20180320, end: 20180320
  11. DEXAMETHASONE SODIUM PHOSPHATE. [Concomitant]
     Active Substance: DEXAMETHASONE SODIUM PHOSPHATE
     Route: 042
     Dates: start: 20180320, end: 20180320

REACTIONS (1)
  - Hypersensitivity [Fatal]

NARRATIVE: CASE EVENT DATE: 20180227
